FAERS Safety Report 7831252-3 (Version None)
Quarter: 2011Q4

REPORT INFORMATION
  Report Type: 
  Country: None (occurrence: None)
  Receive Date: 20111021
  Receipt Date: 20111020
  Transmission Date: 20120403
  Serious: Yes (Other)
  Sender: FDA-Public Use
  Company Number: US-PFIZER INC-2011250273

PATIENT
  Age: 24 Year
  Sex: Female

DRUGS (3)
  1. ACETAMINOPHEN [Suspect]
     Indication: BACK PAIN
  2. FENTANYL [Suspect]
     Indication: BACK PAIN
     Dosage: 25 UG/HR, FOR 5 DAYS
     Route: 062
  3. IBUPROFEN [Suspect]
     Indication: BACK PAIN

REACTIONS (2)
  - DRUG INEFFECTIVE [None]
  - OFF LABEL USE [None]
